FAERS Safety Report 15020580 (Version 1)
Quarter: 2018Q2

REPORT INFORMATION
  Report Type: Spontaneous
  Country: US (occurrence: US)
  Receive Date: 20180618
  Receipt Date: 20180618
  Transmission Date: 20180711
  Serious: No
  Sender: FDA-Public Use
  Company Number: US-MALLINCKRODT-T201705357

PATIENT
  Age: 68 Year
  Sex: Male
  Weight: 98.41 kg

DRUGS (1)
  1. HYDROCODONE/ACETAMINOPHEN [Suspect]
     Active Substance: ACETAMINOPHEN\HYDROCODONE
     Indication: PAIN
     Dosage: 1 TABLET (7.5/325 MG), EVERY 6 HOURS AS NEEDED [NOT TO EXCEED 3,000 MG/DAY]
     Route: 048
     Dates: end: 20171222

REACTIONS (7)
  - Paraesthesia [Unknown]
  - Tinnitus [Unknown]
  - Hypoaesthesia oral [Unknown]
  - Tension headache [Unknown]
  - Feeling abnormal [Unknown]
  - Drug ineffective [Unknown]
  - Malaise [Unknown]

NARRATIVE: CASE EVENT DATE: 20171222
